FAERS Safety Report 4348587-1 (Version None)
Quarter: 2004Q2

REPORT INFORMATION
  Report Type: 
  Country: None (occurrence: None)
  Receive Date: 20040423
  Receipt Date: 20040413
  Transmission Date: 20050107
  Serious: Yes (Hospitalization, Other)
  Sender: FDA-Public Use
  Company Number: HQWYE612415DEC03

PATIENT

DRUGS (1)
  1. RAPAMUNE [Suspect]
     Indication: PROPHYLAXIS AGAINST TRANSPLANT REJECTION
     Dosage: 7 MG, 1X PER 1 DAY, ORAL
     Route: 048
     Dates: start: 20030903, end: 20031224

REACTIONS (14)
  - ANAEMIA [None]
  - BLOOD GLUCOSE INCREASED [None]
  - BLOOD PRESSURE DECREASED [None]
  - ESCHERICHIA BACTERAEMIA [None]
  - FUNGAL INFECTION [None]
  - GASTROINTESTINAL DISORDER [None]
  - HYDRONEPHROSIS [None]
  - OBSTRUCTIVE UROPATHY [None]
  - PROCEDURAL COMPLICATION [None]
  - RENAL FAILURE ACUTE [None]
  - THROMBOSIS [None]
  - ULTRASOUND SCAN ABNORMAL [None]
  - URETERIC OBSTRUCTION [None]
  - UROSEPSIS [None]
